FAERS Safety Report 19450719 (Version 9)
Quarter: 2022Q4

REPORT INFORMATION
  Report Type: Report from Study
  Country: US (occurrence: US)
  Receive Date: 20210622
  Receipt Date: 20221104
  Transmission Date: 20230113
  Serious: Yes (Hospitalization)
  Sender: FDA-Public Use
  Company Number: US-AMGEN-USACT2021093422

PATIENT
  Age: 71 Year
  Sex: Female
  Weight: 111 kg

DRUGS (32)
  1. SOTORASIB [Suspect]
     Active Substance: SOTORASIB
     Indication: K-ras gene mutation
     Dosage: 960 MILLIGRAM
     Route: 048
     Dates: start: 20210413
  2. SOTORASIB [Suspect]
     Active Substance: SOTORASIB
     Indication: Colorectal adenocarcinoma
     Dosage: UNK
     Route: 048
  3. PANITUMUMAB [Suspect]
     Active Substance: PANITUMUMAB
     Indication: K-ras gene mutation
     Dosage: 500 MILLIGRAM
     Route: 040
     Dates: start: 20210413
  4. PANITUMUMAB [Suspect]
     Active Substance: PANITUMUMAB
     Indication: Colorectal adenocarcinoma
  5. MINOCYCLINE [Concomitant]
     Active Substance: MINOCYCLINE HYDROCHLORIDE
     Dosage: 100 MILLIGRAM, BID
     Route: 048
     Dates: start: 20210507, end: 20210605
  6. LASIX [Concomitant]
     Active Substance: FUROSEMIDE
     Dosage: 20 MILLIGRAM, QD
     Route: 048
     Dates: start: 20210608, end: 20210806
  7. MONTELUKAST [Concomitant]
     Active Substance: MONTELUKAST SODIUM
     Dosage: 10 MILLIGRAM
     Route: 048
     Dates: start: 20200512
  8. ESCITALOPRAM [Concomitant]
     Active Substance: ESCITALOPRAM OXALATE
     Dosage: 10 MILLIGRAM
     Route: 048
     Dates: start: 20210326
  9. XARELTO [Concomitant]
     Active Substance: RIVAROXABAN
     Dosage: 20 MILLIGRAM
     Route: 048
     Dates: start: 20200701, end: 20210923
  10. IMODIUM [Concomitant]
     Active Substance: LOPERAMIDE HYDROCHLORIDE
     Dosage: 2 MILLIGRAM
     Route: 048
     Dates: start: 20200917
  11. LOMOTIL [Concomitant]
     Active Substance: ATROPINE SULFATE\DIPHENOXYLATE HYDROCHLORIDE
     Dosage: 2.5 MILLIGRAM
     Route: 048
     Dates: start: 20200917
  12. PANTOPRAZOLE [Concomitant]
     Active Substance: PANTOPRAZOLE
     Dosage: 40 MILLIGRAM
     Route: 048
     Dates: start: 20201022
  13. DOXYCYCLINE HYCLATE [Concomitant]
     Active Substance: DOXYCYCLINE HYCLATE
     Dosage: 100 MILLIGRAM
     Route: 048
     Dates: start: 20210412, end: 20210526
  14. ALBUTEROL [Concomitant]
     Active Substance: ALBUTEROL
     Dosage: 2 UNK -90 MICROGRAM
     Dates: start: 20210419
  15. OLANZAPINE [Concomitant]
     Active Substance: OLANZAPINE
     Dosage: 2.5 MILLIGRAM
     Route: 048
     Dates: start: 20210428, end: 20210527
  16. NYAMYC [Concomitant]
     Active Substance: NYSTATIN
     Dosage: 100000 UNK
     Route: 061
     Dates: start: 20210428, end: 20210617
  17. CALCIUM [Concomitant]
     Active Substance: CALCIUM
     Dosage: 250 MILLIGRAM
     Route: 048
     Dates: start: 20210326
  18. LAC HYDRIN [Concomitant]
     Dosage: 12 UNK
     Route: 061
     Dates: start: 20210428, end: 20210527
  19. ZINC OXIDE [Concomitant]
     Active Substance: ZINC OXIDE
     Dosage: UNK
     Route: 061
     Dates: start: 20210428, end: 20210527
  20. ALA CORT [Concomitant]
     Dosage: 1 UNK
     Route: 061
     Dates: start: 20210503, end: 20210601
  21. CLEOCIN T [Concomitant]
     Active Substance: CLINDAMYCIN PHOSPHATE
     Dosage: 1 UNK
     Route: 061
     Dates: start: 20210503, end: 20210526
  22. DERMA SMOOTH [Concomitant]
     Dosage: 0.01 UNK
     Route: 061
     Dates: start: 20210505, end: 20210621
  23. TRIAMCINOLONE [Concomitant]
     Active Substance: TRIAMCINOLONE
     Dosage: 1-0.1 UNK
     Route: 061
     Dates: start: 20210505, end: 20210622
  24. SILVER SULFADIAZINE [Concomitant]
     Active Substance: SILVER SULFADIAZINE
     Dosage: 1 UNK
     Route: 061
     Dates: start: 20210505, end: 20210526
  25. AMMONIUM LACTATE [Concomitant]
     Active Substance: AMMONIUM LACTATE
     Dosage: 1-12 UNK
     Route: 061
     Dates: start: 20210526, end: 20210622
  26. LORAZEPAM [Concomitant]
     Active Substance: LORAZEPAM
     Dosage: 0.5 MILLIGRAM
     Route: 048
     Dates: start: 20180725
  27. LIDOCAINE AND PRILOCAINE [Concomitant]
     Active Substance: LIDOCAINE\PRILOCAINE
     Dosage: 2.5 UNK
     Route: 061
     Dates: start: 20200115, end: 20210621
  28. TRAMADOL [Concomitant]
     Active Substance: TRAMADOL
     Dosage: 50 MILLIGRAM
     Route: 048
     Dates: start: 20200312
  29. LOSARTAN [Concomitant]
     Active Substance: LOSARTAN
     Dosage: 100 MILLIGRAM
     Route: 048
     Dates: start: 20200512, end: 20210622
  30. AMLODIPINE [Concomitant]
     Active Substance: AMLODIPINE BESYLATE
     Dosage: 5 MILLIGRAM
     Route: 048
     Dates: start: 20200512, end: 20210622
  31. LEVOTHYROXINE [Concomitant]
     Active Substance: LEVOTHYROXINE
     Dosage: 50 MICROGRAM
     Route: 048
     Dates: start: 20200512
  32. ONDANSETRON [Concomitant]
     Active Substance: ONDANSETRON
     Dosage: 8 MILLIGRAM
     Route: 048
     Dates: start: 20210412, end: 20210617

REACTIONS (3)
  - Oedema peripheral [Recovered/Resolved]
  - Cellulitis [Recovered/Resolved]
  - Dermatitis acneiform [Recovered/Resolved]

NARRATIVE: CASE EVENT DATE: 20210615
